FAERS Safety Report 10068160 (Version 5)
Quarter: 2016Q4

REPORT INFORMATION
  Report Type: Spontaneous
  Country: US (occurrence: US)
  Receive Date: 20140409
  Receipt Date: 20161209
  Transmission Date: 20170206
  Serious: No
  Sender: FDA-Public Use
  Company Number: US-PFIZER INC-2014095755

PATIENT
  Age: 75 Year
  Sex: Male

DRUGS (28)
  1. XALATAN [Suspect]
     Active Substance: LATANOPROST
     Dosage: 1 GTT, 1X/DAY (QHS OU,AM)
     Route: 047
  2. METHENAN [Concomitant]
     Dosage: UNK
  3. VESICARE [Concomitant]
     Active Substance: SOLIFENACIN SUCCINATE
     Dosage: 10 MG, DAILY
     Route: 048
  4. CRANBERRY. [Concomitant]
     Active Substance: CRANBERRY
     Dosage: 500 MG, 1X/DAY
     Route: 048
  5. LYRICA [Suspect]
     Active Substance: PREGABALIN
     Dosage: UNK
     Route: 048
  6. XALATAN [Suspect]
     Active Substance: LATANOPROST
     Indication: INTRAOCULAR LENS IMPLANT
     Dosage: 0.005, 1 GTT, 1X/DAY (1 GTT OU QHS)
     Route: 047
  7. TRIAMCINOLONE [Concomitant]
     Active Substance: TRIAMCINOLONE
     Dosage: UNK
  8. HYDROCODONE [Concomitant]
     Active Substance: HYDROCODONE
     Dosage: UNK
  9. FINASTERIDE. [Concomitant]
     Active Substance: FINASTERIDE
     Dosage: 5 MG, 1X/DAY
     Route: 048
  10. HYDROXYZINE [Concomitant]
     Active Substance: HYDROXYZINE\HYDROXYZINE HYDROCHLORIDE
     Dosage: UNK
  11. HYDROXYZINE HYDROCHLORIDE. [Concomitant]
     Active Substance: HYDROXYZINE HYDROCHLORIDE
     Dosage: 25 MG, AS NEEDED (ONE PO QHS PRN )
     Route: 048
  12. VITAMIN B12 [Concomitant]
     Active Substance: CYANOCOBALAMIN
     Dosage: 1 DF, DAILY
     Route: 048
  13. LOVASTATIN. [Concomitant]
     Active Substance: LOVASTATIN
     Dosage: 60 MG, 1X/DAY (THREE TAB PO ONCE DAILY )
     Route: 048
  14. KLOR-CON [Concomitant]
     Active Substance: POTASSIUM CHLORIDE
     Dosage: UNK
  15. COSOPT [Concomitant]
     Active Substance: DORZOLAMIDE HYDROCHLORIDE\TIMOLOL MALEATE
     Indication: GLAUCOMA
     Dosage: 1 GTT, 2X/DAY [DORZOLAMIDE 2%]/ [TIMOLOL 0.5%] 1 DROP Q12HRS
     Route: 047
  16. LYRICA [Suspect]
     Active Substance: PREGABALIN
     Dosage: 50 MG, 3X/DAY
     Route: 048
  17. SOOTHE [Concomitant]
     Active Substance: BISMUTH SUBSALICYLATE\GLYCERIN\PROPYLENE GLYCOL
     Dosage: UNK
  18. HYDROCODONE/ACETAMINOPHEN [Concomitant]
     Active Substance: ACETAMINOPHEN\HYDROCODONE
     Indication: PAIN
     Dosage: UNK, AS NEEDED [HYDROCODONE: 5MG]/[PARACETAMOL-325MG](1/2-1 TAB PO TID)
     Route: 048
  19. XALATAN [Suspect]
     Active Substance: LATANOPROST
     Indication: GLAUCOMA
     Dosage: 1 GTT, 1X/DAY (1 DROP QHS)
     Route: 047
  20. OMEPRAZOLE. [Concomitant]
     Active Substance: OMEPRAZOLE
     Dosage: 40 MG, DAILY
     Route: 048
  21. AFEDITAB CR [Concomitant]
     Active Substance: NIFEDIPINE
     Dosage: 60 MG, DAILY
     Route: 048
  22. XALATAN [Suspect]
     Active Substance: LATANOPROST
     Indication: DRY EYE
     Dosage: 1 GTT, 1X/DAY (1 DROP QHS)
     Route: 047
  23. VIAGRA [Concomitant]
     Active Substance: SILDENAFIL CITRATE
     Dosage: 50 MG, UNK (30-60 MINUTES PRIOR TO INTERCOURSE. DO NOT MX WITH NITRATES)
     Route: 048
  24. VITAMIN B12 [Concomitant]
     Active Substance: CYANOCOBALAMIN
     Dosage: 1 DF, DAILY
     Route: 048
  25. NITROSTAT [Concomitant]
     Active Substance: NITROGLYCERIN
     Indication: CHEST PAIN
     Dosage: 0.4 MG, AS NEEDED (1 TABLET UNDER TONGUE EVERY 5 MIN )
     Route: 060
  26. COUMADIN [Concomitant]
     Active Substance: WARFARIN SODIUM
     Dosage: 5 MG, 1X/DAY
     Route: 048
  27. NIFEDIAC CC [Concomitant]
     Active Substance: NIFEDIPINE
     Dosage: UNK
  28. BACTRIM [Concomitant]
     Active Substance: SULFAMETHOXAZOLE\TRIMETHOPRIM
     Dosage: UNK

REACTIONS (1)
  - Dysphonia [Unknown]
